FAERS Safety Report 5889525-X (Version None)
Quarter: 2008Q3

REPORT INFORMATION
  Report Type: 
  Country: None (occurrence: None)
  Receive Date: 20080919
  Receipt Date: 20080909
  Transmission Date: 20090109
  Serious: Yes (Other)
  Sender: FDA-Public Use
  Company Number: US-JNJFOC-20080902292

PATIENT
  Sex: Female
  Weight: 36.3 kg

DRUGS (4)
  1. REMICADE [Suspect]
     Dosage: TOTAL OF 4 INFUSIONS ADMINISTERED
     Route: 042
  2. REMICADE [Suspect]
     Dosage: INFUSION 2 AND 3 ADMINISTERED ON UNKNOWN DATES
     Route: 042
  3. REMICADE [Suspect]
     Indication: RHEUMATOID ARTHRITIS
     Route: 042
  4. LORAZEPAM [Suspect]
     Indication: ANXIETY

REACTIONS (4)
  - ANXIETY [None]
  - BLOOD PRESSURE INCREASED [None]
  - LOSS OF CONSCIOUSNESS [None]
  - RESPIRATORY FAILURE [None]
